FAERS Safety Report 7482929-3 (Version None)
Quarter: 2011Q2

REPORT INFORMATION
  Report Type: 
  Country: None (occurrence: None)
  Receive Date: 20110516
  Receipt Date: 20110318
  Transmission Date: 20111010
  Serious: No
  Sender: FDA-Public Use
  Company Number: US-BAYER-2011-027860

PATIENT
  Sex: Male
  Weight: 86 kg

DRUGS (6)
  1. SIMVASTATIN [Concomitant]
     Dosage: UNK
     Route: 048
  2. FUROSEMIDE [Concomitant]
     Dosage: UNK
     Route: 048
  3. POTASSIUM CHLORIDE [Concomitant]
     Route: 048
  4. ALEVE (CAPLET) [Suspect]
     Indication: PAIN
     Dosage: BOTTLE COUNT 130CT
     Route: 048
     Dates: end: 20110318
  5. DOCUSATE [Concomitant]
     Dosage: UNK
     Route: 048
  6. DILTIAZEM [Concomitant]
     Route: 048

REACTIONS (1)
  - NO ADVERSE EVENT [None]
